FAERS Safety Report 25664918 (Version 2)
Quarter: 2025Q3

REPORT INFORMATION
  Report Type: Spontaneous
  Country: CN (occurrence: CN)
  Receive Date: 20250811
  Receipt Date: 20250813
  Transmission Date: 20251020
  Serious: Yes (Life-Threatening, Hospitalization)
  Sender: PFIZER
  Company Number: CN-PFIZER INC-PV202500095923

PATIENT
  Age: 46 Year
  Sex: Female
  Weight: 54.1 kg

DRUGS (2)
  1. CYTARABINE [Suspect]
     Active Substance: CYTARABINE
     Indication: Acute myeloid leukaemia
     Dosage: 3.000 G, 2X/DAY
     Route: 041
     Dates: start: 20250724, end: 20250727
  2. SODIUM CHLORIDE [Concomitant]
     Active Substance: SODIUM CHLORIDE
     Indication: Vehicle solution use
     Dosage: 250.0000 ML, 2X/DAY
     Route: 041
     Dates: start: 20250724, end: 20250727

REACTIONS (2)
  - Myelosuppression [Unknown]
  - Pyrexia [Recovered/Resolved]

NARRATIVE: CASE EVENT DATE: 20250806
